FAERS Safety Report 14609768 (Version 1)
Quarter: 2018Q1

REPORT INFORMATION
  Report Type: Spontaneous
  Country: ES (occurrence: ES)
  Receive Date: 20180307
  Receipt Date: 20180307
  Transmission Date: 20180509
  Serious: Yes (Hospitalization, Other)
  Sender: FDA-Public Use
  Company Number: ES-PFIZER INC-2018092357

PATIENT
  Age: 45 Year
  Sex: Male

DRUGS (8)
  1. CIMZIA [Suspect]
     Active Substance: CERTOLIZUMAB PEGOL
     Dosage: 1 DF, CYCLIC
  2. PREDNISONE. [Suspect]
     Active Substance: PREDNISONE
     Dosage: OCT/2014 WITH A NEW DOSE REDUCTION IN JUN/2015
  3. ROACTEMRA [Suspect]
     Active Substance: TOCILIZUMAB
     Indication: RHEUMATOID ARTHRITIS
  4. LEFLUNOMIDE. [Suspect]
     Active Substance: LEFLUNOMIDE
  5. METHOTREXATE. [Suspect]
     Active Substance: METHOTREXATE
     Dosage: 20 MG/WEEK
  6. ACFOL [Suspect]
     Active Substance: FOLIC ACID
     Dosage: 5 UG/KG, 1X/DAY
  7. CERTOLIZUMAB [Suspect]
     Active Substance: CERTOLIZUMAB
     Dosage: UNK
     Dates: start: 20130301
  8. PREDNISONE. [Suspect]
     Active Substance: PREDNISONE
     Dosage: OCT/2014 WITH A NEW DOSE REDUCTION IN JUN/2015
     Dates: start: 20141001

REACTIONS (12)
  - Ill-defined disorder [Unknown]
  - Face oedema [Unknown]
  - Deafness neurosensory [Unknown]
  - Pneumonia [Unknown]
  - Rhinitis allergic [Unknown]
  - Drug intolerance [Unknown]
  - Eosinophilia [Unknown]
  - Sleep apnoea syndrome [Unknown]
  - Asthma [Unknown]
  - Bursitis [Unknown]
  - Pleural effusion [Unknown]
  - Asthma [Unknown]

NARRATIVE: CASE EVENT DATE: 20101201
